FAERS Safety Report 6538044-6 (Version None)
Quarter: 2010Q1

REPORT INFORMATION
  Report Type: 
  Country: None (occurrence: None)
  Receive Date: 20100112
  Receipt Date: 20100112
  Transmission Date: 20100710
  Serious: Yes (Other)
  Sender: FDA-Public Use
  Company Number: None

PATIENT
  Age: 49 Year
  Sex: Female
  Weight: 78.0187 kg

DRUGS (1)
  1. COMPAZINE [Suspect]
     Indication: MIGRAINE
     Dosage: NOT KNOWN IV DRIP
     Route: 041
     Dates: start: 20100109, end: 20100109

REACTIONS (9)
  - DYSPNOEA [None]
  - FEELING ABNORMAL [None]
  - HEADACHE [None]
  - HYPOPHAGIA [None]
  - IRRITABILITY [None]
  - MUSCULOSKELETAL STIFFNESS [None]
  - NASAL CONGESTION [None]
  - NECK PAIN [None]
  - SUSPICIOUSNESS [None]
